FAERS Safety Report 5059495-5 (Version None)
Quarter: 2006Q3

REPORT INFORMATION
  Report Type: 
  Country: None (occurrence: None)
  Receive Date: 20060724
  Receipt Date: 20050407
  Transmission Date: 20061208
  Serious: Yes (Hospitalization, Other)
  Sender: FDA-Public Use
  Company Number: PHHO2005IT05655

PATIENT
  Age: 65 Year
  Sex: Female

DRUGS (2)
  1. ZOLEDRONIC ACID [Suspect]
     Indication: MULTIPLE MYELOMA
     Dosage: 4 MG, QMO
     Route: 042
     Dates: start: 20021126
  2. PEGASYS [Suspect]
     Indication: MULTIPLE MYELOMA
     Dosage: 35 UG, QW
     Dates: start: 20020920, end: 20050325

REACTIONS (4)
  - AUTOIMMUNE DISORDER [None]
  - BLOOD THYROID STIMULATING HORMONE INCREASED [None]
  - PRIMARY HYPOTHYROIDISM [None]
  - THYROXINE FREE DECREASED [None]
